FAERS Safety Report 13568606 (Version 1)
Quarter: 2017Q2

REPORT INFORMATION
  Report Type: Spontaneous
  Country: US (occurrence: US)
  Receive Date: 20170522
  Receipt Date: 20170522
  Transmission Date: 20170830
  Serious: Yes (Other)
  Sender: FDA-Public Use
  Company Number: None

PATIENT
  Age: 72 Year
  Sex: Female
  Weight: 72 kg

DRUGS (3)
  1. SYNTHROID [Suspect]
     Active Substance: LEVOTHYROXINE SODIUM
     Indication: THYROID DISORDER
     Route: 048
  2. HYRAULAZIZNE [Concomitant]
  3. NEFEDIPINE [Concomitant]

REACTIONS (3)
  - Malaise [None]
  - Reaction to drug excipients [None]
  - Breast cancer [None]

NARRATIVE: CASE EVENT DATE: 20150404
